FAERS Safety Report 23652006 (Version 1)
Quarter: 2024Q1

REPORT INFORMATION
  Report Type: Spontaneous
  Country: US (occurrence: US)
  Receive Date: 20240320
  Receipt Date: 20240320
  Transmission Date: 20240410
  Serious: No
  Sender: FDA-Public Use
  Company Number: US-862174955-ML2024-01389

PATIENT
  Age: 78 Year
  Sex: Female
  Weight: 58.97 kg

DRUGS (3)
  1. TRAVOPROST [Suspect]
     Active Substance: TRAVOPROST
     Indication: Glaucoma
     Route: 047
     Dates: start: 202402
  2. TRAVOPROST [Suspect]
     Active Substance: TRAVOPROST
     Dates: start: 202312
  3. TRAVOPROST [Suspect]
     Active Substance: TRAVOPROST

REACTIONS (3)
  - Product packaging issue [Unknown]
  - Incorrect dose administered [Unknown]
  - No adverse event [Unknown]
